FAERS Safety Report 8813452 (Version 1)
Quarter: 2012Q4

REPORT INFORMATION
  Report Type: 
  Country: US (occurrence: US)
  Receive Date: 20120927
  Receipt Date: 20120927
  Transmission Date: 20130627
  Serious: No
  Sender: FDA-Public Use
  Company Number: US-AMGEN-USASP2012038024

PATIENT
  Age: 86 Year
  Sex: Female
  Weight: 59.86 kg

DRUGS (4)
  1. PROLIA [Suspect]
     Indication: OSTEOPOROSIS POSTMENOPAUSAL
     Dosage: 60 mg, q6mo
     Route: 058
     Dates: start: 20120404
  2. AMLODIPINE [Concomitant]
     Indication: HYPERTENSION
     Dosage: 10 mg, qd
     Route: 048
  3. ENALAPRIL [Concomitant]
     Indication: HYPERTENSION
     Dosage: 20 mg, qd
     Route: 048
  4. ENTOCORT [Concomitant]
     Indication: COLITIS

REACTIONS (11)
  - Skin fissures [Not Recovered/Not Resolved]
  - Genital pain [Not Recovered/Not Resolved]
  - Genital rash [Not Recovered/Not Resolved]
  - Fungal infection [Unknown]
  - Genital lesion [Not Recovered/Not Resolved]
  - Urinary tract infection [Unknown]
  - Cystitis [Recovered/Resolved]
  - Oedema peripheral [Unknown]
  - Pruritus [Not Recovered/Not Resolved]
  - Erythema [Not Recovered/Not Resolved]
  - Rash [Not Recovered/Not Resolved]
